FAERS Safety Report 8150931-4 (Version None)
Quarter: 2012Q1

REPORT INFORMATION
  Report Type: 
  Country: None (occurrence: None)
  Receive Date: 20120220
  Receipt Date: 20120206
  Transmission Date: 20120608
  Serious: Yes (Hospitalization, Disabling, Other)
  Sender: FDA-Public Use
  Company Number: PHHO2007KR11389

PATIENT
  Sex: Male
  Weight: 60.2 kg

DRUGS (2)
  1. NEURONTIN [Concomitant]
     Indication: PAIN
     Dates: start: 20040910, end: 20070705
  2. GILENYA [Suspect]
     Indication: MULTIPLE SCLEROSIS
     Dosage: 0.5 MG, QD
     Dates: start: 20070619, end: 20070705

REACTIONS (38)
  - JC VIRUS INFECTION [None]
  - DISORIENTATION [None]
  - DYSARTHRIA [None]
  - DIZZINESS [None]
  - DEMENTIA [None]
  - PYREXIA [None]
  - INSOMNIA [None]
  - VIITH NERVE PARALYSIS [None]
  - ABULIA [None]
  - ASTHENIA [None]
  - MEMORY IMPAIRMENT [None]
  - PARAESTHESIA [None]
  - FACIAL PARESIS [None]
  - INCOHERENT [None]
  - AFFECT LABILITY [None]
  - HICCUPS [None]
  - MUTISM [None]
  - DYSPHAGIA [None]
  - LYMPHADENITIS [None]
  - DEPRESSION [None]
  - SJOGREN'S SYNDROME [None]
  - MULTIPLE SCLEROSIS RELAPSE [None]
  - HEMIPARESIS [None]
  - NERVOUSNESS [None]
  - BRONCHOPNEUMONIA [None]
  - RASH ERYTHEMATOUS [None]
  - URTICARIA [None]
  - NODULE [None]
  - LUNG CONSOLIDATION [None]
  - AGITATION [None]
  - HEADACHE [None]
  - AGITATED DEPRESSION [None]
  - LUNG INFILTRATION [None]
  - IRRITABILITY [None]
  - ABNORMAL BEHAVIOUR [None]
  - DYSPHORIA [None]
  - SOMNOLENCE [None]
  - GAIT DISTURBANCE [None]
